FAERS Safety Report 23581431 (Version 1)
Quarter: 2024Q1

REPORT INFORMATION
  Report Type: Spontaneous
  Country: US (occurrence: US)
  Receive Date: 20240229
  Receipt Date: 20240229
  Transmission Date: 20240409
  Serious: No
  Sender: FDA-Public Use
  Company Number: US-PFIZER INC-202400052510

PATIENT
  Age: 74 Year
  Sex: Female

DRUGS (2)
  1. INLYTA [Suspect]
     Active Substance: AXITINIB
     Dosage: UNK
     Dates: start: 2023
  2. INLYTA [Suspect]
     Active Substance: AXITINIB
     Dosage: 2 MG (2 TABLETS OF 1MG), 2X/DAY

REACTIONS (8)
  - Nausea [Unknown]
  - Vomiting [Unknown]
  - Oral discomfort [Unknown]
  - Diarrhoea [Unknown]
  - Weight decreased [Unknown]
  - Stomatitis [Unknown]
  - Dry throat [Unknown]
  - Dysphonia [Unknown]
